FAERS Safety Report 8057644-8 (Version None)
Quarter: 2012Q1

REPORT INFORMATION
  Report Type: 
  Country: None (occurrence: None)
  Receive Date: 20120120
  Receipt Date: 20120113
  Transmission Date: 20120608
  Serious: No
  Sender: FDA-Public Use
  Company Number: US-BIOGENIDEC-2011BI048067

PATIENT
  Sex: Female

DRUGS (1)
  1. TYSABRI [Suspect]
     Indication: MULTIPLE SCLEROSIS
     Route: 042
     Dates: start: 20070709

REACTIONS (11)
  - ABNORMAL BEHAVIOUR [None]
  - FATIGUE [None]
  - AGITATION [None]
  - TRISMUS [None]
  - MEMORY IMPAIRMENT [None]
  - SOMNOLENCE [None]
  - DISTURBANCE IN ATTENTION [None]
  - PRURITUS GENERALISED [None]
  - ASTHENIA [None]
  - MUSCLE SPASMS [None]
  - DRUG EFFECT DECREASED [None]
